FAERS Safety Report 9308629 (Version 2)
Quarter: 2013Q2

REPORT INFORMATION
  Report Type: Spontaneous
  Country: US (occurrence: US)
  Receive Date: 20130524
  Receipt Date: 20130604
  Transmission Date: 20140414
  Serious: Yes (Hospitalization, Other)
  Sender: FDA-Public Use
  Company Number: US-BAYER-2013-062436

PATIENT
  Age: 29 Year
  Sex: Female

DRUGS (1)
  1. MIRENA [Suspect]
     Indication: CONTRACEPTION
     Dosage: 20 MCG/24HR, CONT
     Route: 015
     Dates: start: 20121015, end: 20130511

REACTIONS (5)
  - Ruptured ectopic pregnancy [Recovered/Resolved]
  - Ectopic pregnancy with intrauterine device [Recovered/Resolved]
  - Drug ineffective [None]
  - Pain [Recovered/Resolved]
  - Genital haemorrhage [Recovered/Resolved]
